FAERS Safety Report 10261062 (Version 1)
Quarter: 2014Q2

REPORT INFORMATION
  Report Type: Other
  Country: US (occurrence: US)
  Receive Date: 20140626
  Receipt Date: 20140626
  Transmission Date: 20141212
  Serious: Yes (Other)
  Sender: FDA-Public Use
  Company Number: US-SHIRE-US201403205

PATIENT
  Age: 18 Year
  Sex: Female

DRUGS (2)
  1. CINRYZE [Suspect]
     Indication: HEREDITARY ANGIOEDEMA
     Dosage: UNK (1500), OTHER (TWICE WEEKLY)
     Route: 042
     Dates: start: 20140409
  2. CINRYZE [Suspect]
     Indication: PROPHYLAXIS

REACTIONS (3)
  - Pharyngeal oedema [Recovering/Resolving]
  - Localised oedema [Recovering/Resolving]
  - Prescribed overdose [Not Recovered/Not Resolved]
